FAERS Safety Report 16501429 (Version 1)
Quarter: 2019Q3

REPORT INFORMATION
  Report Type: Spontaneous
  Country: US (occurrence: US)
  Receive Date: 20190629
  Receipt Date: 20190629
  Transmission Date: 20191004
  Serious: No
  Sender: FDA-Public Use
  Company Number: None

PATIENT
  Age: 52 Year
  Sex: Female
  Weight: 78.3 kg

DRUGS (8)
  1. VIT D [Concomitant]
     Active Substance: VITAMIN D NOS
  2. ALPRAZOLAM. [Concomitant]
     Active Substance: ALPRAZOLAM
  3. BUPROPION 100MG TABLETS [Suspect]
     Active Substance: BUPROPION
     Indication: MAJOR DEPRESSION
     Dosage: ?          QUANTITY:1 TABLET(S);?
     Route: 048
  4. LOPRESSOR [Concomitant]
     Active Substance: METOPROLOL TARTRATE
  5. LASIX [Concomitant]
     Active Substance: FUROSEMIDE
  6. COLOPLAST [Concomitant]
  7. LEVOTHYROXINE. [Concomitant]
     Active Substance: LEVOTHYROXINE
  8. ZYRTEC [Concomitant]
     Active Substance: CETIRIZINE HYDROCHLORIDE

REACTIONS (17)
  - Asthenia [None]
  - Euphoric mood [None]
  - Tinnitus [None]
  - Logorrhoea [None]
  - Memory impairment [None]
  - Suicidal ideation [None]
  - Heart rate increased [None]
  - Deafness [None]
  - Flight of ideas [None]
  - Insomnia [None]
  - Cognitive disorder [None]
  - Decreased appetite [None]
  - Impulsive behaviour [None]
  - Weight decreased [None]
  - Headache [None]
  - Libido decreased [None]
  - Drug intolerance [None]

NARRATIVE: CASE EVENT DATE: 20190401
